FAERS Safety Report 6473039-2 (Version None)
Quarter: 2009Q4

REPORT INFORMATION
  Report Type: 
  Country: None (occurrence: None)
  Receive Date: 20091204
  Receipt Date: 20091203
  Transmission Date: 20100525
  Serious: Yes (Death)
  Sender: FDA-Public Use
  Company Number: US-ASTRAZENECA-2007UW14881

PATIENT
  Age: 16425 Day
  Sex: Female
  Weight: 90.7 kg

DRUGS (5)
  1. SEROQUEL [Suspect]
     Indication: INSOMNIA
     Route: 048
     Dates: start: 20000401, end: 20070811
  2. SEROQUEL [Suspect]
     Route: 048
     Dates: start: 20050419
  3. NEURONTIN [Concomitant]
  4. LEXAPRO [Concomitant]
     Dates: start: 20050419
  5. PLAVIX [Concomitant]
     Dates: start: 20050419

REACTIONS (4)
  - DEATH [None]
  - DIABETES MELLITUS INADEQUATE CONTROL [None]
  - TYPE 1 DIABETES MELLITUS [None]
  - TYPE 2 DIABETES MELLITUS [None]
